FAERS Safety Report 11867145 (Version 1)
Quarter: 2015Q4

REPORT INFORMATION
  Report Type: Spontaneous
  Country: JP (occurrence: JP)
  Receive Date: 20151224
  Receipt Date: 20151224
  Transmission Date: 20160305
  Serious: Yes (Hospitalization, Other)
  Sender: FDA-Public Use
  Company Number: GXJP2015JP001289

PATIENT
  Age: 69 Year
  Sex: Female

DRUGS (12)
  1. METHOTREXATE CAPSULE [Suspect]
     Active Substance: METHOTREXATE
     Indication: RHEUMATOID ARTHRITIS
     Route: 048
  2. CLARITHROMYCIN TABLETS [Suspect]
     Active Substance: CLARITHROMYCIN
     Indication: ATYPICAL MYCOBACTERIAL INFECTION
     Dosage: 800 MG, QD
     Route: 048
  3. CIPROFLOXACIN. [Suspect]
     Active Substance: CIPROFLOXACIN
     Indication: ATYPICAL MYCOBACTERIAL INFECTION
     Dosage: 400 MG
     Route: 065
  4. ADALIMUMAB [Suspect]
     Active Substance: ADALIMUMAB
     Indication: RHEUMATOID ARTHRITIS
     Route: 042
  5. TACROLIMUS. [Suspect]
     Active Substance: TACROLIMUS
     Indication: RHEUMATOID ARTHRITIS
     Dosage: 2 MG
     Route: 065
  6. AMIKACIN [Suspect]
     Active Substance: AMIKACIN
     Indication: ATYPICAL MYCOBACTERIAL INFECTION
     Route: 065
  7. METHYLPREDNISOL SODIUM SUCCINATE [Suspect]
     Active Substance: METHYLPREDNISOLONE SODIUM SUCCINATE
     Indication: RHEUMATOID ARTHRITIS
     Route: 065
  8. BUCILLAMINE [Concomitant]
     Active Substance: BUCILLAMINE
     Indication: RHEUMATOID ARTHRITIS
     Dosage: 100 MG, QD
     Route: 065
  9. METHOTREXATE CAPSULE [Suspect]
     Active Substance: METHOTREXATE
     Dosage: 12 MG, QW
     Route: 048
  10. METHYLPREDNISOL SODIUM SUCCINATE [Suspect]
     Active Substance: METHYLPREDNISOLONE SODIUM SUCCINATE
     Dosage: 7 MG, UNK
     Route: 065
  11. SULFASALAZINE. [Concomitant]
     Active Substance: SULFASALAZINE
     Indication: RHEUMATOID ARTHRITIS
     Dosage: 1000 MG
     Route: 065
  12. RIFAMPICIN CAPSULES [Suspect]
     Active Substance: RIFAMPIN
     Indication: ATYPICAL MYCOBACTERIAL INFECTION
     Dosage: 450 MG, QD
     Route: 048

REACTIONS (4)
  - Granulomatous dermatitis [Recovering/Resolving]
  - Renal failure [Unknown]
  - Mycobacterium test positive [None]
  - Adult T-cell lymphoma/leukaemia [Recovered/Resolved]
